FAERS Safety Report 4771490-X (Version None)
Quarter: 2005Q3

REPORT INFORMATION
  Report Type: 
  Country: None (occurrence: None)
  Receive Date: 20050914
  Receipt Date: 20050914
  Transmission Date: 20060218
  Serious: Yes (Other)
  Sender: FDA-Public Use
  Company Number: None

PATIENT
  Age: 64 Year
  Sex: Male
  Weight: 82.6 kg

DRUGS (1)
  1. SPIRONOLACTONE [Suspect]
     Indication: ASCITES
     Dosage: 50 MG QID
     Dates: start: 20050511, end: 20050620

REACTIONS (1)
  - GYNAECOMASTIA [None]
